FAERS Safety Report 6297452-1 (Version None)
Quarter: 2009Q3

REPORT INFORMATION
  Report Type: 
  Country: None (occurrence: None)
  Receive Date: 20090805
  Receipt Date: 20090619
  Transmission Date: 20100115
  Serious: No
  Sender: FDA-Public Use
  Company Number: US-BAYER-200924687NA

PATIENT
  Age: 46 Year
  Sex: Female

DRUGS (6)
  1. ULTRAVIST-300 SINGLE USE INJECTION [Suspect]
     Indication: COMPUTERISED TOMOGRAM THORAX
     Dosage: TOTAL DAILY DOSE: 100 ML  UNIT DOSE: 100 ML
     Route: 042
     Dates: start: 20090618, end: 20090618
  2. EFFEXOR [Concomitant]
  3. TRAZODONE HCL [Concomitant]
  4. OMEPERAZOL [Concomitant]
  5. GABAPENTIN [Concomitant]
  6. UNKNOWN CONTRAST [Concomitant]
     Route: 048
     Dates: start: 20090618, end: 20090618

REACTIONS (2)
  - PRURITUS [None]
  - URTICARIA [None]
